FAERS Safety Report 5493025-9 (Version None)
Quarter: 2007Q4

REPORT INFORMATION
  Report Type: 
  Country: None (occurrence: None)
  Receive Date: 20071018
  Receipt Date: 20071004
  Transmission Date: 20080405
  Serious: Yes (Other)
  Sender: FDA-Public Use
  Company Number: 106726

PATIENT
  Sex: Male

DRUGS (2)
  1. DAIVOBET (DAIVOBET) /01643401/ [Suspect]
     Indication: PSORIASIS
     Dosage: 1 DF; TOPICAL
     Route: 061
     Dates: start: 20070101, end: 20070101
  2. SILKIS (CALCITRIOL) [Concomitant]

REACTIONS (2)
  - ASTHMATIC CRISIS [None]
  - EOSINOPHIL COUNT INCREASED [None]
